FAERS Safety Report 8509790-X (Version None)
Quarter: 2012Q2

REPORT INFORMATION
  Report Type: 
  Country: None (occurrence: None)
  Receive Date: 20120405
  Receipt Date: 20090611
  Transmission Date: 20120825
  Serious: Yes (Other)
  Sender: FDA-Public Use
  Company Number: PHEH2009US05398

PATIENT
  Age: 82 Year
  Sex: Female
  Weight: 62.3 kg

DRUGS (1)
  1. RECLAST [Suspect]
     Indication: OSTEOPOROSIS
     Dosage: 5 MG, INFUSION
     Dates: start: 20090521, end: 20090521

REACTIONS (4)
  - BACK PAIN [None]
  - DYSSTASIA [None]
  - PAIN IN EXTREMITY [None]
  - ARTHRALGIA [None]
